FAERS Safety Report 15397992 (Version 1)
Quarter: 2018Q3

REPORT INFORMATION
  Report Type: Spontaneous
  Country: FR (occurrence: FR)
  Receive Date: 20180918
  Receipt Date: 20180918
  Transmission Date: 20181010
  Serious: Yes (Hospitalization)
  Sender: FDA-Public Use
  Company Number: FR-TEVA-2018-FR-955750

PATIENT
  Age: 79 Year
  Sex: Male

DRUGS (6)
  1. PAROXETINE (CHLORHYDRATE DE) HEMIHYDRATE [Suspect]
     Active Substance: PAROXETINE HYDROCHLORIDE
     Indication: PRODUCT USED FOR UNKNOWN INDICATION
     Dosage: 1 DOSAGE FORMS DAILY;
     Route: 048
     Dates: end: 20180819
  2. FLECAINE [Concomitant]
     Active Substance: FLECAINIDE
  3. TANGANIL [Concomitant]
     Active Substance: ACETYLLEUCINE
  4. PARACETAMOL [Concomitant]
     Active Substance: ACETAMINOPHEN
  5. AMLOR [Concomitant]
     Active Substance: AMLODIPINE BESYLATE
  6. XARELTO [Suspect]
     Active Substance: RIVAROXABAN
     Indication: ATRIAL FIBRILLATION
     Dosage: 1 DOSAGE FORMS DAILY;
     Route: 048
     Dates: end: 20180819

REACTIONS (1)
  - Cerebral haematoma [Recovered/Resolved]

NARRATIVE: CASE EVENT DATE: 20180819
